FAERS Safety Report 9296743 (Version 1)
Quarter: 2013Q2

REPORT INFORMATION
  Report Type: Spontaneous
  Country: US (occurrence: US)
  Receive Date: 20130517
  Receipt Date: 20130517
  Transmission Date: 20140414
  Serious: No
  Sender: FDA-Public Use
  Company Number: US-009507513-1304USA017756

PATIENT
  Age: 6 Year
  Sex: Female

DRUGS (2)
  1. AZASITE [Suspect]
     Indication: BLEPHARITIS
     Dosage: 2 GTT, 1 DROP IN BOTH EYES, FOR 2 TO 3 WEEKS
     Route: 047
     Dates: start: 20121212, end: 20130102
  2. AZASITE [Suspect]
     Dosage: 2 GTT, 1 DROP IN BOTH EYES
     Route: 047
     Dates: start: 20130425

REACTIONS (3)
  - Ocular hyperaemia [Recovering/Resolving]
  - Incorrect storage of drug [Unknown]
  - Wrong technique in drug usage process [Unknown]
